FAERS Safety Report 16111114 (Version 3)
Quarter: 2019Q4

REPORT INFORMATION
  Report Type: Spontaneous
  Country: US (occurrence: US)
  Receive Date: 20190325
  Receipt Date: 20191002
  Transmission Date: 20200122
  Serious: No
  Sender: FDA-Public Use
  Company Number: US-GILEAD-2019-0398483

PATIENT
  Age: 70 Year
  Sex: Male
  Weight: 81 kg

DRUGS (24)
  1. ASPIRIN EC [Concomitant]
     Active Substance: ASPIRIN
  2. TOPROL XL [Concomitant]
     Active Substance: METOPROLOL SUCCINATE
  3. RANEXA [Suspect]
     Active Substance: RANOLAZINE
     Dosage: 1000 MG, BID
     Route: 065
     Dates: end: 20190131
  4. NITROSTAT [Concomitant]
     Active Substance: NITROGLYCERIN
  5. PROSCAR [Concomitant]
     Active Substance: FINASTERIDE
  6. PROSTATE SR [Concomitant]
  7. NEURONTIN [Concomitant]
     Active Substance: GABAPENTIN
  8. ATIVAN [Concomitant]
     Active Substance: LORAZEPAM
  9. IMDUR [Concomitant]
     Active Substance: ISOSORBIDE MONONITRATE
  10. MELATONIN [Concomitant]
     Active Substance: MELATONIN
  11. RANEXA [Suspect]
     Active Substance: RANOLAZINE
     Indication: PRODUCT USED FOR UNKNOWN INDICATION
     Dosage: UNK
     Route: 065
  12. VITAMIN D3 [Concomitant]
     Active Substance: CHOLECALCIFEROL
  13. NORCO [Concomitant]
     Active Substance: ACETAMINOPHEN\HYDROCODONE BITARTRATE
     Indication: PAIN
  14. NITRO-DUR [Concomitant]
     Active Substance: NITROGLYCERIN
  15. BRILINTA [Concomitant]
     Active Substance: TICAGRELOR
  16. FISH OIL [Concomitant]
     Active Substance: FISH OIL
  17. CLARITIN [Concomitant]
     Active Substance: LORATADINE
  18. BACTROBAN [Concomitant]
     Active Substance: MUPIROCIN\MUPIROCIN CALCIUM
  19. SENOKOT [Concomitant]
     Active Substance: SENNOSIDES
  20. GLUCOPHAGE XR [Concomitant]
     Active Substance: METFORMIN HYDROCHLORIDE
  21. BENICAR [Concomitant]
     Active Substance: OLMESARTAN MEDOXOMIL
  22. PROTONIX [Concomitant]
     Active Substance: PANTOPRAZOLE SODIUM
  23. RED YEAST RICE [Concomitant]
     Active Substance: DIETARY SUPPLEMENT
  24. ZANAFLEX [Concomitant]
     Active Substance: TIZANIDINE HYDROCHLORIDE

REACTIONS (2)
  - Hypoacusis [Not Recovered/Not Resolved]
  - Tinnitus [Recovering/Resolving]

NARRATIVE: CASE EVENT DATE: 20190213
